FAERS Safety Report 4611692-6 (Version None)
Quarter: 2005Q2

REPORT INFORMATION
  Report Type: 
  Country: None (occurrence: None)
  Receive Date: 20050311
  Receipt Date: 20041206
  Transmission Date: 20051028
  Serious: No
  Sender: FDA-Public Use
  Company Number: 2004-BP-13324BP

PATIENT
  Sex: Female

DRUGS (11)
  1. SPIRIVA [Suspect]
     Indication: CHRONIC OBSTRUCTIVE PULMONARY DISEASE
     Dosage: 18 MCG (18 MCG), IH;  18 MCG (18 MCG), PO
     Route: 055
     Dates: start: 20040901
  2. ADVAIR DISKUS 100/50 [Concomitant]
  3. DIOVAN [Concomitant]
  4. NORVASC [Concomitant]
  5. CATAPRES [Concomitant]
  6. SYNTHROID [Concomitant]
  7. ACETYLSALICYLIC ACID SRT [Concomitant]
  8. LANOXIN [Concomitant]
  9. SINGULAIR (MONTELUKAST) [Concomitant]
  10. PROZAC [Concomitant]
  11. EVISTA [Concomitant]

REACTIONS (3)
  - BLOOD PRESSURE INCREASED [None]
  - DRY MOUTH [None]
  - MEDICATION ERROR [None]
